FAERS Safety Report 15696122 (Version 1)
Quarter: 2018Q4

REPORT INFORMATION
  Report Type: Report from Study
  Country: CN (occurrence: CN)
  Receive Date: 20181206
  Receipt Date: 20181206
  Transmission Date: 20190205
  Serious: Yes (Other)
  Sender: FDA-Public Use
  Company Number: CN-BAYER-2018-219773

PATIENT
  Sex: Female

DRUGS (1)
  1. MIRENA [Suspect]
     Active Substance: LEVONORGESTREL
     Indication: NEOPLASM PROPHYLAXIS
     Dosage: 20 MCG/24HR, CONT
     Route: 015

REACTIONS (3)
  - Endometrial cancer [None]
  - Off label use of device [None]
  - Device use issue [None]
